FAERS Safety Report 4391491-3 (Version None)
Quarter: 2004Q3

REPORT INFORMATION
  Report Type: 
  Country: None (occurrence: None)
  Receive Date: 20040701
  Receipt Date: 20040621
  Transmission Date: 20050211
  Serious: Yes (Hospitalization)
  Sender: FDA-Public Use
  Company Number: US-JNJFOC-20040206355

PATIENT
  Age: 40 Year
  Sex: Female

DRUGS (3)
  1. DURAGESIC [Suspect]
     Indication: PAIN
     Dosage: 75 UG/HR, 1 IN 72 HOUR, TRANSDERMAL;  100 UG/HR, TRANSDERMAL
     Route: 062
     Dates: start: 20030801
  2. NEURONTIN [Concomitant]
  3. ESTROGEN (ESTROGEN NOS) [Concomitant]

REACTIONS (4)
  - DRUG EFFECT DECREASED [None]
  - MEDICATION ERROR [None]
  - PHARMACEUTICAL PRODUCT COUNTERFEIT [None]
  - POSTOPERATIVE INFECTION [None]
